FAERS Safety Report 24255120 (Version 1)
Quarter: 2024Q3

REPORT INFORMATION
  Report Type: Spontaneous
  Country: GB (occurrence: None)
  Receive Date: 20240827
  Receipt Date: 20240827
  Transmission Date: 20241017
  Serious: Yes (Other)
  Sender: ASTRAZENECA
  Company Number: 2024A188552

PATIENT
  Age: 74 Year
  Sex: Male
  Weight: 77 kg

DRUGS (1)
  1. ROSUVASTATIN [Suspect]
     Active Substance: ROSUVASTATIN\ROSUVASTATIN CALCIUM
     Indication: Ischaemic stroke
     Dosage: 20MG
     Route: 048
     Dates: start: 20150701, end: 20240602

REACTIONS (3)
  - Myalgia [Recovering/Resolving]
  - Cognitive disorder [Recovering/Resolving]
  - Dyspepsia [Recovered/Resolved]

NARRATIVE: CASE EVENT DATE: 20210101
